FAERS Safety Report 4479533-8 (Version None)
Quarter: 2004Q4

REPORT INFORMATION
  Report Type: 
  Country: None (occurrence: None)
  Receive Date: 20041020
  Receipt Date: 20041008
  Transmission Date: 20050328
  Serious: Yes (Hospitalization)
  Sender: FDA-Public Use
  Company Number: CZ-BRISTOL-MYERS SQUIBB COMPANY-12726212

PATIENT
  Age: 30 Year
  Sex: Female

DRUGS (4)
  1. ARIPIPRAZOLE [Suspect]
     Indication: SCHIZOPHRENIA
     Dosage: 15MG 17-AUG-04 TO 30-AUG-04, 30MG 31-AUG-04 TO UNKNOWN
     Route: 048
     Dates: start: 20040817
  2. PROMETHAZINE HCL [Concomitant]
     Dates: start: 20031201
  3. BIPERIDEN HYDROCHLORIDE TAB [Concomitant]
     Dates: start: 20030708
  4. NITRAZEPAM [Concomitant]
     Dates: start: 20040831

REACTIONS (2)
  - CONDITION AGGRAVATED [None]
  - SCHIZOPHRENIA [None]
